FAERS Safety Report 15250456 (Version 4)
Quarter: 2023Q4

REPORT INFORMATION
  Report Type: Spontaneous
  Country: US (occurrence: US)
  Receive Date: 20180807
  Receipt Date: 20231109
  Transmission Date: 20240109
  Serious: Yes (Other)
  Sender: FDA-Public Use
  Company Number: US-PFIZER INC-2018197243

PATIENT
  Age: 1 Year
  Sex: Female

DRUGS (3)
  1. XELJANZ [Suspect]
     Active Substance: TOFACITINIB CITRATE
     Indication: Janus kinase 2 mutation
     Dosage: 5 MG, 2X/DAY
     Route: 048
     Dates: start: 2018
  2. XELJANZ [Suspect]
     Active Substance: TOFACITINIB CITRATE
     Indication: Lymphoproliferative disorder
     Dosage: 5 MG, 2X/DAY
     Route: 048
     Dates: start: 201803
  3. XELJANZ [Suspect]
     Active Substance: TOFACITINIB CITRATE
     Indication: Gastrointestinal disorder

REACTIONS (4)
  - Haematochezia [Recovered/Resolved]
  - Therapeutic response unexpected [Unknown]
  - Inflammatory marker increased [Unknown]
  - Off label use [Unknown]

NARRATIVE: CASE EVENT DATE: 20180301
